FAERS Safety Report 11910475 (Version 1)
Quarter: 2016Q1

REPORT INFORMATION
  Report Type: Spontaneous
  Country: US (occurrence: None)
  Receive Date: 20160111
  Receipt Date: 20160111
  Transmission Date: 20160526
  Serious: Yes (Hospitalization)
  Sender: FDA-Public Use
  Company Number: None

PATIENT
  Age: 39 Year
  Sex: Female
  Weight: 64.9 kg

DRUGS (2)
  1. TAXOL [Suspect]
     Active Substance: PACLITAXEL
     Dates: end: 20151120
  2. CARBOPLATIN. [Suspect]
     Active Substance: CARBOPLATIN
     Dates: end: 20151120

REACTIONS (8)
  - Anaemia [None]
  - Myocardial infarction [None]
  - Acute kidney injury [None]
  - Dehydration [None]
  - Hypotension [None]
  - Urinary tract infection [None]
  - Sepsis [None]
  - Pulmonary embolism [None]

NARRATIVE: CASE EVENT DATE: 20151129
